FAERS Safety Report 12851870 (Version 1)
Quarter: 2016Q4

REPORT INFORMATION
  Report Type: Report from Study
  Country: PL (occurrence: PL)
  Receive Date: 20161017
  Receipt Date: 20161017
  Transmission Date: 20170207
  Serious: Yes (Other)
  Sender: FDA-Public Use
  Company Number: PL-ROCHE-1840724

PATIENT

DRUGS (4)
  1. CAPECITABINE. [Suspect]
     Active Substance: CAPECITABINE
     Indication: COLORECTAL CANCER
     Route: 065
  2. FLUOROURACIL. [Suspect]
     Active Substance: FLUOROURACIL
     Indication: COLORECTAL CANCER
     Dosage: 425 MG/M2, FOR 5 DAYS, EVERY 28 DAYS (ADMINISTERED WITH CALCIUM FOLINATE) ?200 MG/M2 BOLUS, 400 MG/M
     Route: 065
  3. CALCIUM FOLINATE [Suspect]
     Active Substance: LEUCOVORIN CALCIUM
     Indication: COLORECTAL CANCER
     Dosage: 20 MG/M2, 5 DAYS, EVERY 28 DAYS (ADMINISTERED WITH FLUOROURACIL).?200 MG/M2, 2 DAYS, EVERY 21 DAYS (
     Route: 065
  4. IRINOTECAN [Suspect]
     Active Substance: IRINOTECAN
     Indication: COLORECTAL CANCER
     Route: 065

REACTIONS (10)
  - Lymphopenia [Unknown]
  - Vomiting [Unknown]
  - Diarrhoea [Unknown]
  - Blood creatinine abnormal [Unknown]
  - Blood bilirubin abnormal [Unknown]
  - Haemoglobin abnormal [Unknown]
  - Blood glucose abnormal [Unknown]
  - Platelet disorder [Unknown]
  - Nausea [Unknown]
  - Palmar-plantar erythrodysaesthesia syndrome [Unknown]
